FAERS Safety Report 18156706 (Version 3)
Quarter: 2020Q3

REPORT INFORMATION
  Report Type: Spontaneous
  Country: US (occurrence: US)
  Receive Date: 20200817
  Receipt Date: 20200920
  Transmission Date: 20201103
  Serious: Yes (Hospitalization, Other)
  Sender: FDA-Public Use
  Company Number: US-ROCHE-2660135

PATIENT
  Sex: Male
  Weight: 102.15 kg

DRUGS (4)
  1. AVASTIN [Suspect]
     Active Substance: BEVACIZUMAB
     Route: 050
     Dates: start: 20200610, end: 20200610
  2. AMOXICILLIN. [Concomitant]
     Active Substance: AMOXICILLIN
  3. AVASTIN [Suspect]
     Active Substance: BEVACIZUMAB
     Indication: NEOVASCULAR AGE-RELATED MACULAR DEGENERATION
     Route: 050
     Dates: start: 20200710
  4. AVASTIN [Suspect]
     Active Substance: BEVACIZUMAB
     Route: 050
     Dates: start: 20200811, end: 20200811

REACTIONS (7)
  - Atrial fibrillation [Unknown]
  - Hypertension [Unknown]
  - Product use in unapproved indication [Unknown]
  - Off label use [Unknown]
  - Chest pain [Unknown]
  - Myocardial infarction [Recovering/Resolving]
  - Pneumonia [Recovered/Resolved]
